FAERS Safety Report 20637018 (Version 2)
Quarter: 2022Q2

REPORT INFORMATION
  Report Type: Spontaneous
  Country: FR (occurrence: FR)
  Receive Date: 20220325
  Receipt Date: 20220429
  Transmission Date: 20220720
  Serious: Yes (Life-Threatening)
  Sender: FDA-Public Use
  Company Number: None

PATIENT
  Age: 56 Year
  Sex: Female
  Weight: 54 kg

DRUGS (5)
  1. FLUOXETINE [Suspect]
     Active Substance: FLUOXETINE HYDROCHLORIDE
     Indication: Depression
     Dosage: FLUOXETINE (CHLORHYDRATE DE) , UNIT DOSE : 20 MG
     Route: 048
     Dates: end: 20220221
  2. KARDEGIC [Suspect]
     Active Substance: ASPIRIN DL-LYSINE
     Indication: Stent placement
     Dosage: 1 DF , POWDER FOR ORAL SOLUTION IN SACHET , STRENGTH : 300 MG
     Route: 048
     Dates: start: 20220217, end: 20220221
  3. TICAGRELOR [Suspect]
     Active Substance: TICAGRELOR
     Indication: Stent placement
     Dosage: 2 DF , STRENGTH : 90 MG
     Route: 048
     Dates: start: 20220221, end: 20220222
  4. HEPARIN SODIUM [Suspect]
     Active Substance: HEPARIN SODIUM
     Indication: Stent placement
     Dosage: 4000 IU , HEPARINE SODIQUE
     Route: 042
     Dates: start: 20220222, end: 20220222
  5. ASPIRIN DL-LYSINE [Suspect]
     Active Substance: ASPIRIN DL-LYSINE
     Indication: Stent placement
     Dosage: POWDER AND SOLUTION FOR PARENTERAL USE , 4000 IU , STRENGTH : 500 MG/5 ML
     Route: 042
     Dates: start: 20220222, end: 20220222

REACTIONS (1)
  - Cerebral haemorrhage [Recovering/Resolving]

NARRATIVE: CASE EVENT DATE: 20220223
